FAERS Safety Report 20727939 (Version 1)
Quarter: 2022Q2

REPORT INFORMATION
  Report Type: Report from Study
  Country: HU (occurrence: HU)
  Receive Date: 20220419
  Receipt Date: 20220419
  Transmission Date: 20220721
  Serious: Yes (Hospitalization)
  Sender: FDA-Public Use
  Company Number: HU-ABBVIE-22K-076-4361404-00

PATIENT
  Sex: Male

DRUGS (3)
  1. CARBIDOPA\LEVODOPA [Suspect]
     Active Substance: CARBIDOPA\LEVODOPA
     Indication: Parkinson^s disease
     Dosage: MORNING DOSE: 7.5 ML; CONTINUOUS DOSE: 4.5 ML/HOUR; EXTRA DOSE: 2.8 ML
     Route: 050
     Dates: start: 20150106
  2. CARBIDOPA\LEVODOPA [Suspect]
     Active Substance: CARBIDOPA\LEVODOPA
  3. OLANZAPINE [Concomitant]
     Active Substance: OLANZAPINE
     Indication: Depression
     Dosage: MORNING DOSE: 10 MG; EVENING DOSE: 15 MG

REACTIONS (5)
  - Limb injury [Unknown]
  - Femur fracture [Not Recovered/Not Resolved]
  - Haematoma [Not Recovered/Not Resolved]
  - Device loosening [Not Recovered/Not Resolved]
  - Fall [Recovered/Resolved with Sequelae]

NARRATIVE: CASE EVENT DATE: 20220406
